FAERS Safety Report 9549265 (Version 3)
Quarter: 2013Q4

REPORT INFORMATION
  Report Type: Spontaneous
  Country: US (occurrence: US)
  Receive Date: 20130924
  Receipt Date: 20131003
  Transmission Date: 20140711
  Serious: Yes (Death, Life-Threatening, Hospitalization, Other)
  Sender: FDA-Public Use
  Company Number: US-GILEAD-2013-0082069

PATIENT
  Age: 53 Year
  Sex: Female

DRUGS (4)
  1. LETAIRIS [Suspect]
     Indication: PULMONARY HYPERTENSION
     Dosage: 10 MG, UNK
     Route: 048
     Dates: start: 20110203, end: 20130710
  2. LETAIRIS [Suspect]
     Indication: HEPATIC CIRRHOSIS
  3. ADCIRCA [Concomitant]
  4. TYVASO [Concomitant]

REACTIONS (8)
  - Hepatic cirrhosis [Fatal]
  - Renal failure acute [Fatal]
  - Hyperbilirubinaemia [Fatal]
  - Sepsis [Unknown]
  - Gastrointestinal haemorrhage [Unknown]
  - Device related infection [Unknown]
  - Nausea [Unknown]
  - Vomiting [Unknown]
